FAERS Safety Report 6283044-7 (Version None)
Quarter: 2009Q3

REPORT INFORMATION
  Report Type: 
  Country: None (occurrence: None)
  Receive Date: 20090724
  Receipt Date: 20090710
  Transmission Date: 20100115
  Serious: Yes (Life-Threatening, Hospitalization)
  Sender: FDA-Public Use
  Company Number: US-PFIZER INC-2008153196

PATIENT
  Sex: Female
  Weight: 52 kg

DRUGS (7)
  1. *PLACEBO [Suspect]
     Indication: PULMONARY HYPERTENSION
     Dosage: 0 MG
     Route: 048
     Dates: start: 20080327, end: 20080715
  2. SILDENAFIL CITRATE [Suspect]
     Indication: PULMONARY HYPERTENSION
     Dosage: 20 MG, 3X/DAY
     Dates: start: 20080718
  3. SILDENAFIL CITRATE [Suspect]
     Dosage: 40 MG, 3X/DAY
     Dates: start: 20081114, end: 20081212
  4. TRAVOPROST [Concomitant]
     Indication: CATARACT
     Dosage: 1 DROP AT BEDTIME OU
     Route: 047
  5. AMLODIPINE BESILATE [Concomitant]
     Dosage: 10 MG, 1X/DAY
     Route: 048
  6. FOLIC ACID [Concomitant]
     Dosage: 1 MG, 1X/DAY
     Route: 048
  7. TYLENOL [Concomitant]
     Dosage: 650 MG, AS NEEDED
     Route: 048

REACTIONS (1)
  - SUBARACHNOID HAEMORRHAGE [None]
